FAERS Safety Report 13411702 (Version 3)
Quarter: 2018Q1

REPORT INFORMATION
  Report Type: Spontaneous
  Country: US (occurrence: US)
  Receive Date: 20170406
  Receipt Date: 20180315
  Transmission Date: 20180508
  Serious: No
  Sender: FDA-Public Use
  Company Number: US-JNJFOC-20170303533

PATIENT
  Sex: Male

DRUGS (4)
  1. RISPERDAL [Suspect]
     Active Substance: RISPERIDONE
     Indication: SCHIZOAFFECTIVE DISORDER
     Dosage: IN VARYING DOSE OF 0.25, 0.5 AND 01 MG
     Route: 048
     Dates: start: 20020628, end: 20060331
  2. RISPERDAL [Suspect]
     Active Substance: RISPERIDONE
     Indication: ATTENTION DEFICIT/HYPERACTIVITY DISORDER
     Dosage: IN VARYING DOSE OF 0.25, 0.5 AND 01 MG
     Route: 048
     Dates: start: 20020628, end: 20060331
  3. RISPERDAL [Suspect]
     Active Substance: RISPERIDONE
     Indication: SCHIZOAFFECTIVE DISORDER
     Dosage: IN VARYING DOSE OF 0.25, 0.5, 0.75 AND 1.5 MG
     Route: 048
     Dates: start: 20060818, end: 20071025
  4. RISPERDAL [Suspect]
     Active Substance: RISPERIDONE
     Indication: ATTENTION DEFICIT/HYPERACTIVITY DISORDER
     Dosage: IN VARYING DOSE OF 0.25, 0.5, 0.75 AND 1.5 MG
     Route: 048
     Dates: start: 20060818, end: 20071025

REACTIONS (2)
  - Gynaecomastia [Unknown]
  - Emotional distress [Unknown]
